FAERS Safety Report 4616855-1 (Version None)
Quarter: 2005Q1

REPORT INFORMATION
  Report Type: 
  Country: None (occurrence: None)
  Receive Date: 20050321
  Receipt Date: 20031120
  Transmission Date: 20050727
  Serious: Yes (Hospitalization)
  Sender: FDA-Public Use
  Company Number: 6712

PATIENT
  Age: 83 Year
  Sex: Female

DRUGS (1)
  1. GLYCERYL TRINITRATE [Suspect]
     Route: 060

REACTIONS (3)
  - CONFUSIONAL STATE [None]
  - DELIRIUM [None]
  - OVERDOSE [None]
